FAERS Safety Report 14655300 (Version 3)
Quarter: 2019Q2

REPORT INFORMATION
  Report Type: Spontaneous
  Country: PL (occurrence: PL)
  Receive Date: 20180319
  Receipt Date: 20190417
  Transmission Date: 20190711
  Serious: Yes (Hospitalization)
  Sender: FDA-Public Use
  Company Number: PL-ACTELION-A-CH2018-168779

PATIENT
  Age: 52 Year
  Sex: Female

DRUGS (10)
  1. STAYVEER [Suspect]
     Active Substance: BOSENTAN
     Indication: PULMONARY ARTERIAL HYPERTENSION
     Dosage: UNK
     Route: 048
  2. KALDYUM [Concomitant]
     Active Substance: POTASSIUM CHLORIDE
  3. TRITTICO [Concomitant]
     Active Substance: TRAZODONE HYDROCHLORIDE
  4. REVATIO [Concomitant]
     Active Substance: SILDENAFIL CITRATE
     Dosage: UNK
  5. VELETRI [Suspect]
     Active Substance: EPOPROSTENOL
     Indication: PULMONARY ARTERIAL HYPERTENSION
     Dosage: 72 NG, UNK
     Route: 042
     Dates: start: 201509
  6. VELETRI [Suspect]
     Active Substance: EPOPROSTENOL
     Dosage: 116 NG/KG, PER MIN
     Route: 042
  7. BIOPRAZOL [Concomitant]
  8. HYDROXYZINUM [Concomitant]
     Active Substance: HYDROXYZINE HYDROCHLORIDE
  9. SPIRONEX [Concomitant]
  10. OPSUMIT [Suspect]
     Active Substance: MACITENTAN
     Indication: PULMONARY ARTERIAL HYPERTENSION
     Route: 048

REACTIONS (3)
  - Product deposit [Recovered/Resolved]
  - Catheter management [Unknown]
  - Device occlusion [Recovered/Resolved]

NARRATIVE: CASE EVENT DATE: 20180225
